FAERS Safety Report 14629162 (Version 1)
Quarter: 2018Q1

REPORT INFORMATION
  Report Type: Spontaneous
  Country: US (occurrence: US)
  Receive Date: 20180312
  Receipt Date: 20180312
  Transmission Date: 20180509
  Serious: Yes (Hospitalization)
  Sender: FDA-Public Use
  Company Number: None

PATIENT
  Age: 71 Year
  Sex: Male
  Weight: 94.7 kg

DRUGS (2)
  1. AZACITIDINE 75MG/M2 [Suspect]
     Active Substance: AZACITIDINE
     Indication: ACUTE MYELOID LEUKAEMIA
     Dosage: 75MG/M2 DAYS 1-7 Q28 DAYS IV
     Route: 042
     Dates: start: 20180220, end: 20180226
  2. PEMBROLIZUMAB 200MG [Suspect]
     Active Substance: PEMBROLIZUMAB
     Indication: ACUTE MYELOID LEUKAEMIA
     Dosage: 200MG 200MG EVERY 3 WK IV
     Route: 042
     Dates: start: 20180227

REACTIONS (6)
  - Haematemesis [None]
  - Dyspnoea [None]
  - Pyrexia [None]
  - Nausea [None]
  - Haemoglobin decreased [None]
  - Fatigue [None]

NARRATIVE: CASE EVENT DATE: 20180309
